FAERS Safety Report 14162961 (Version 1)
Quarter: 2017Q4

REPORT INFORMATION
  Report Type: Spontaneous
  Country: ES (occurrence: ES)
  Receive Date: 20171106
  Receipt Date: 20171106
  Transmission Date: 20180321
  Serious: Yes (Other)
  Sender: FDA-Public Use
  Company Number: ES-TEVA-820121ISR

PATIENT
  Age: 31 Year
  Sex: Female
  Weight: 45 kg

DRUGS (2)
  1. YASMIN DIARIO 3 MG/0.03 MG COMPRIMIDOS RECUBIERTOS CON PELICULA [Concomitant]
     Dosage: 3 MILLIGRAM DAILY;
     Route: 048
  2. VELAFAXINA RETARD TEVA 75 MG CAPSULAS DURAS DE LIBERACION PROLONGADA [Suspect]
     Active Substance: VENLAFAXINE HYDROCHLORIDE
     Indication: ANXIETY
     Dosage: 75 MILLIGRAM DAILY;
     Route: 048
     Dates: start: 20170118, end: 20170118

REACTIONS (11)
  - Hyperhidrosis [Recovered/Resolved]
  - Dizziness [Recovered/Resolved]
  - Hypoaesthesia [Recovered/Resolved]
  - Euphoric mood [Recovered/Resolved]
  - Nausea [Recovered/Resolved]
  - Mydriasis [Recovered/Resolved]
  - Hallucination, visual [Recovered/Resolved]
  - Paraesthesia [Recovered/Resolved]
  - Muscle rigidity [Recovered/Resolved]
  - Speech disorder [Recovered/Resolved]
  - Asthenia [Recovered/Resolved]

NARRATIVE: CASE EVENT DATE: 20170118
